FAERS Safety Report 9729853 (Version 1)
Quarter: 2013Q4

REPORT INFORMATION
  Report Type: Spontaneous
  Country: GB (occurrence: None)
  Receive Date: 20131203
  Receipt Date: 20131203
  Transmission Date: 20140711
  Serious: Yes (Hospitalization)
  Sender: FDA-Public Use
  Company Number: AUR-APL-2013-09875

PATIENT
  Sex: Male

DRUGS (8)
  1. ISOSORBIDE MONONITRATE [Suspect]
     Indication: PRODUCT USED FOR UNKNOWN INDICATION
     Dosage: UNKNOWN
     Dates: end: 20130116
  2. METFORMIN (METFORMIN) [Suspect]
     Indication: TYPE 2 DIABETES MELLITUS
  3. NICORANDIL (NICORANDIL) [Suspect]
     Indication: PRODUCT USED FOR UNKNOWN INDICATION
     Dosage: UNKNOWN
     Dates: end: 20130116
  4. GLYCERYL TRINITRATE [Suspect]
     Indication: PRODUCT USED FOR UNKNOWN INDICATION
  5. ASPIRIN (ACETYLSALICYLIC ACID) [Concomitant]
  6. DIPROBASE (DIPROBASE) [Concomitant]
  7. FOLIC ACID (FOLIC ACID) [Concomitant]
  8. HYROXOCOBALAMIN (HYDROXOCOBALAMIN} [Concomitant]

REACTIONS (1)
  - Subdural haematoma [None]
